FAERS Safety Report 21934064 (Version 1)
Quarter: 2023Q1

REPORT INFORMATION
  Report Type: Spontaneous
  Country: US (occurrence: US)
  Receive Date: 20230201
  Receipt Date: 20230201
  Transmission Date: 20230417
  Serious: No
  Sender: FDA-Public Use
  Company Number: US-SA-SAC20230130000070

PATIENT
  Age: 34 Year
  Sex: Male

DRUGS (1)
  1. AGALSIDASE BETA [Suspect]
     Active Substance: AGALSIDASE BETA

REACTIONS (2)
  - Globotriaosylsphingosine increased [Unknown]
  - Globotriaosylceramide increased [Unknown]

NARRATIVE: CASE EVENT DATE: 20230101
